FAERS Safety Report 15155812 (Version 1)
Quarter: 2018Q3

REPORT INFORMATION
  Report Type: Spontaneous
  Country: SE (occurrence: SE)
  Receive Date: 20180717
  Receipt Date: 20180717
  Transmission Date: 20181010
  Serious: Yes (Hospitalization)
  Sender: FDA-Public Use
  Company Number: SE-US WORLDMEDS, LLC-STA_00018026

PATIENT
  Age: 55 Year
  Sex: Male

DRUGS (8)
  1. PARGITAN [Concomitant]
     Active Substance: TRIHEXYPHENIDYL HYDROCHLORIDE
  2. DOMPERIDON EBB [Concomitant]
  3. APOMORPHINE HYDROCHLORIDE [Suspect]
     Active Substance: APOMORPHINE HYDROCHLORIDE
     Indication: PARKINSON^S DISEASE
     Dates: start: 20131028, end: 20131204
  4. SINEMET DEPOT 50 MG/200 MG DEPOTTABLETT [Concomitant]
  5. SINEMET 25 MG/100 MG TABLETT [Concomitant]
  6. AZILECT [Concomitant]
     Active Substance: RASAGILINE MESYLATE
  7. SIFROL [Concomitant]
     Active Substance: PRAMIPEXOLE
  8. ORSTANORM [Concomitant]

REACTIONS (4)
  - Pyrexia [Recovered/Resolved]
  - Sepsis [Recovered/Resolved]
  - Pneumonia [Recovered/Resolved]
  - Urinary tract infection [Recovered/Resolved]

NARRATIVE: CASE EVENT DATE: 20131114
